FAERS Safety Report 6703539-9 (Version None)
Quarter: 2010Q2

REPORT INFORMATION
  Report Type: 
  Country: None (occurrence: None)
  Receive Date: 20100430
  Receipt Date: 20100422
  Transmission Date: 20101027
  Serious: Yes (Other)
  Sender: FDA-Public Use
  Company Number: PHHY2010DK26378

PATIENT
  Sex: Female
  Weight: 70 kg

DRUGS (1)
  1. RITALIN TAB [Suspect]
     Indication: CONTINUOUS POSITIVE AIRWAY PRESSURE
     Dosage: 20 MILLIGRAM(S)
     Route: 048
     Dates: start: 20090220, end: 20091010

REACTIONS (1)
  - RASH [None]
